FAERS Safety Report 8961909 (Version 2)
Quarter: 2013Q1

REPORT INFORMATION
  Report Type: Spontaneous
  Country: CA (occurrence: CA)
  Receive Date: 20121213
  Receipt Date: 20130115
  Transmission Date: 20140127
  Serious: Yes (Hospitalization, Other)
  Sender: FDA-Public Use
  Company Number: CA-BIOGENIDEC-2012BI057652

PATIENT
  Age: 24 Year
  Sex: Female

DRUGS (7)
  1. TYSABRI [Suspect]
     Indication: RELAPSING-REMITTING MULTIPLE SCLEROSIS
     Route: 042
     Dates: start: 20080425
  2. VARENICLINE [Concomitant]
  3. TRICYCLEN [Concomitant]
  4. AMITRIPTYLINE [Concomitant]
  5. TRAMACET [Concomitant]
  6. ALPRAZOLAM [Concomitant]
  7. TYLENOL [Concomitant]

REACTIONS (2)
  - Convulsion [Unknown]
  - Suicide attempt [Unknown]
